FAERS Safety Report 12983510 (Version 1)
Quarter: 2016Q4

REPORT INFORMATION
  Report Type: Spontaneous
  Country: US (occurrence: US)
  Receive Date: 20161129
  Receipt Date: 20161129
  Transmission Date: 20170207
  Serious: No
  Sender: FDA-Public Use
  Company Number: US-PFIZER INC-2016543910

PATIENT
  Sex: Male

DRUGS (2)
  1. SERTRALINE HCL [Suspect]
     Active Substance: SERTRALINE HYDROCHLORIDE
     Dosage: 25 MG, UNK
  2. SERTRALINE HCL [Suspect]
     Active Substance: SERTRALINE HYDROCHLORIDE
     Dosage: 25 MG (BREAK IT IN HALF TO GET HIS 25MG DOSE)

REACTIONS (4)
  - Head discomfort [Unknown]
  - Anxiety [Unknown]
  - Withdrawal syndrome [Unknown]
  - Drug effect incomplete [Unknown]
